FAERS Safety Report 4331915-0 (Version None)
Quarter: 2004Q1

REPORT INFORMATION
  Report Type: 
  Country: None (occurrence: None)
  Receive Date: 20040329
  Receipt Date: 20040311
  Transmission Date: 20041129
  Serious: Yes (Hospitalization)
  Sender: FDA-Public Use
  Company Number: CERZ-10436

PATIENT
  Age: 13 Year
  Sex: Female
  Weight: 26.2 kg

DRUGS (12)
  1. CEREZYME [Suspect]
     Indication: GAUCHER'S DISEASE
     Dosage: 1800 UNITS Q2WKS; IV
     Route: 042
     Dates: start: 19980703, end: 20031017
  2. MEILAX [Concomitant]
  3. TEGRETOL [Concomitant]
  4. HYSERENIN [Concomitant]
  5. ALDACTONE [Concomitant]
  6. EPARA [Concomitant]
  7. ADEROXAL [Concomitant]
  8. MEPTIN [Concomitant]
  9. DIPYRIDAMOLE [Concomitant]
  10. RIVOTRIL [Concomitant]
  11. DANTRIUM [Concomitant]
  12. LASIX [Concomitant]

REACTIONS (8)
  - CONDITION AGGRAVATED [None]
  - HAEMOTHORAX [None]
  - NIEMANN-PICK DISEASE [None]
  - PALLOR [None]
  - PLEURAL EFFUSION [None]
  - PLEURISY [None]
  - SHOCK HAEMORRHAGIC [None]
  - TACHYCARDIA [None]
